FAERS Safety Report 8826470 (Version 2)
Quarter: 2012Q4

REPORT INFORMATION
  Report Type: 
  Country: MX (occurrence: MX)
  Receive Date: 20121008
  Receipt Date: 20121010
  Transmission Date: 20130627
  Serious: Yes (Death, Hospitalization, Other)
  Sender: FDA-Public Use
  Company Number: PHHY2012MX087595

PATIENT
  Age: 79 Year
  Sex: Female

DRUGS (6)
  1. CO-DIOVAN [Suspect]
     Indication: HYPERTENSION
     Dosage: 1 tablet (160/12.5 mg) daily
     Dates: start: 201112, end: 20120915
  2. FUROSEMIDE [Concomitant]
     Indication: RENAL DISORDER
     Dosage: 1 DF, Q12H
     Dates: start: 201201, end: 20120921
  3. AMLODIPINE [Concomitant]
     Indication: HYPERTENSION
     Dosage: 1 DF, Q12H
     Dates: start: 201112, end: 20120921
  4. BEZAFIBRATE [Concomitant]
     Dosage: 200 mg, Q12H
     Dates: start: 201207
  5. CARBAMAZEPINE [Concomitant]
     Indication: PAIN
     Dosage: 1 tablet daily
  6. B COMPLEX [Concomitant]
     Indication: VITAMIN SUPPLEMENTATION
     Dosage: 1 Df daily
     Dates: start: 201112

REACTIONS (10)
  - Renal failure [Fatal]
  - Cardio-respiratory arrest [Fatal]
  - Septic shock [Fatal]
  - Type 2 diabetes mellitus [Fatal]
  - Blood test abnormal [Unknown]
  - Musculoskeletal pain [Unknown]
  - Urinary tract infection [Not Recovered/Not Resolved]
  - Pain in extremity [Unknown]
  - Hypertension [Unknown]
  - General physical health deterioration [Unknown]
